FAERS Safety Report 25161782 (Version 7)
Quarter: 2025Q2

REPORT INFORMATION
  Report Type: Spontaneous
  Country: BR (occurrence: BR)
  Receive Date: 20250404
  Receipt Date: 20250606
  Transmission Date: 20250716
  Serious: Yes (Death, Hospitalization, Other)
  Sender: CHIESI
  Company Number: BR-CHIESI-2025CHF01201

PATIENT
  Age: 14 Year
  Sex: Female
  Weight: 31 kg

DRUGS (6)
  1. LAMZEDE [Suspect]
     Active Substance: VELMANASE ALFA-TYCV
     Indication: Alpha-mannosidosis
     Dosage: 1 MILLIGRAM/KILOGRAM, QW
     Route: 042
     Dates: start: 20250210, end: 20250331
  2. LAMZEDE [Suspect]
     Active Substance: VELMANASE ALFA-TYCV
     Route: 042
     Dates: end: 20250515
  3. DIAZEPAM [Concomitant]
     Active Substance: DIAZEPAM
     Indication: Sleep disorder
  4. ALBUTEROL [Concomitant]
     Active Substance: ALBUTEROL
     Indication: Condition aggravated
     Dosage: UNK, QD
  5. DIAZEPAM [Concomitant]
     Active Substance: DIAZEPAM
     Indication: Product used for unknown indication
     Dosage: 1 DOSAGE FORM, HS
  6. DOMPERIDONE [Concomitant]
     Active Substance: DOMPERIDONE
     Indication: Product used for unknown indication

REACTIONS (31)
  - Death [Fatal]
  - Pneumonia [Recovered/Resolved]
  - Septic shock [Not Recovered/Not Resolved]
  - Pneumonia bacterial [Not Recovered/Not Resolved]
  - Tachycardia [Not Recovered/Not Resolved]
  - Abdominal pain [Unknown]
  - Bradycardia [Unknown]
  - Pyrexia [Unknown]
  - Hypotension [Unknown]
  - Syncope [Unknown]
  - Product dose omission issue [Unknown]
  - Pain [Unknown]
  - Heart rate increased [Unknown]
  - Dyspnoea [Recovered/Resolved]
  - Rhinorrhoea [Unknown]
  - Oxygen saturation decreased [Unknown]
  - Lung disorder [Unknown]
  - Ecchymosis [Unknown]
  - Affect lability [Unknown]
  - Ill-defined disorder [Unknown]
  - Bronchospasm [Not Recovered/Not Resolved]
  - Hypercapnia [Unknown]
  - Blood lactic acid increased [Not Recovered/Not Resolved]
  - Haemoglobin decreased [Not Recovered/Not Resolved]
  - Malaise [Unknown]
  - Malaise [Unknown]
  - Pyrexia [Unknown]
  - Pyrexia [Recovered/Resolved]
  - Vomiting [Unknown]
  - Wheezing [Unknown]
  - Tachycardia [Unknown]

NARRATIVE: CASE EVENT DATE: 20250211
